FAERS Safety Report 21354679 (Version 3)
Quarter: 2024Q2

REPORT INFORMATION
  Report Type: Spontaneous
  Country: US (occurrence: US)
  Receive Date: 20220920
  Receipt Date: 20240404
  Transmission Date: 20240716
  Serious: Yes (Other)
  Sender: FDA-Public Use
  Company Number: US-PFIZER INC-202201162587

PATIENT
  Age: 62 Year
  Sex: Male

DRUGS (1)
  1. HEPARIN SODIUM [Suspect]
     Active Substance: HEPARIN SODIUM
     Dosage: 25,000 UNITS PER 250ML D5
     Route: 041
     Dates: start: 20220223, end: 20220228

REACTIONS (1)
  - Heparin-induced thrombocytopenia [Unknown]
